FAERS Safety Report 10921574 (Version 1)
Quarter: 2015Q1

REPORT INFORMATION
  Report Type: Spontaneous
  Country: US (occurrence: US)
  Receive Date: 20150317
  Receipt Date: 20150317
  Transmission Date: 20150721
  Serious: Yes (Congenital Anomaly, Other)
  Sender: FDA-Public Use
  Company Number: US-ABBVIE-15P-163-1360620-00

PATIENT
  Sex: Male

DRUGS (1)
  1. DEPAKOTE [Suspect]
     Active Substance: DIVALPROEX SODIUM
     Indication: MATERNAL EXPOSURE TIMING UNSPECIFIED
     Route: 064

REACTIONS (12)
  - Anhedonia [Unknown]
  - Loss of employment [Unknown]
  - Social problem [Unknown]
  - Pulmonary hypertension [Unknown]
  - Scoliosis [Unknown]
  - Congenital anomaly [Unknown]
  - Atrial septal defect [Unknown]
  - Deformity [Unknown]
  - Anxiety [Unknown]
  - Foetal exposure during pregnancy [Unknown]
  - Injury [Unknown]
  - Pain [Unknown]
